FAERS Safety Report 11579032 (Version 2)
Quarter: 2015Q4

REPORT INFORMATION
  Report Type: Spontaneous
  Country: IN (occurrence: IN)
  Receive Date: 20150930
  Receipt Date: 20151027
  Transmission Date: 20160304
  Serious: Yes (Hospitalization)
  Sender: FDA-Public Use
  Company Number: IN-BAUSCH-BL-2015-022048

PATIENT
  Age: 29 Year
  Sex: Female

DRUGS (2)
  1. ACECLOFENAC [Concomitant]
     Active Substance: ACECLOFENAC
     Indication: PAIN IN EXTREMITY
  2. HYDROCORTISONE. [Suspect]
     Active Substance: HYDROCORTISONE
     Indication: PLANTAR FASCIITIS
     Route: 061
     Dates: start: 201108

REACTIONS (1)
  - Compartment syndrome [Recovering/Resolving]
